FAERS Safety Report 18848524 (Version 1)
Quarter: 2021Q1

REPORT INFORMATION
  Report Type: Report from Study
  Country: ZA (occurrence: ZA)
  Receive Date: 20210205
  Receipt Date: 20210205
  Transmission Date: 20210419
  Serious: Yes (Other)
  Sender: FDA-Public Use
  Company Number: PHHY2016ZA065285

PATIENT
  Age: 49 Year
  Sex: Female

DRUGS (6)
  1. ACLASTA [Suspect]
     Active Substance: ZOLEDRONIC ACID
     Dosage: 100 ML, Q12MO
     Route: 041
     Dates: start: 2012
  2. ACLASTA [Suspect]
     Active Substance: ZOLEDRONIC ACID
     Dosage: 100 ML, Q12MO
     Route: 041
     Dates: start: 2013
  3. ACLASTA [Suspect]
     Active Substance: ZOLEDRONIC ACID
     Dosage: 100 ML, Q12MO
     Route: 041
     Dates: start: 2011
  4. ACLASTA [Suspect]
     Active Substance: ZOLEDRONIC ACID
     Dosage: 100 ML, Q12MO
     Route: 041
     Dates: start: 2014
  5. ACLASTA [Suspect]
     Active Substance: ZOLEDRONIC ACID
     Indication: OSTEOPOROSIS
     Dosage: 100 ML, Q12MO
     Route: 042
     Dates: start: 2010
  6. ACLASTA [Suspect]
     Active Substance: ZOLEDRONIC ACID
     Dosage: 100 ML, Q12MO
     Route: 041
     Dates: start: 2016

REACTIONS (7)
  - Osteoporosis [Unknown]
  - Foot fracture [Recovering/Resolving]
  - Back pain [Recovering/Resolving]
  - Spinal fracture [Not Recovered/Not Resolved]
  - Nodule [Unknown]
  - Condition aggravated [Unknown]
  - Drug ineffective [Unknown]

NARRATIVE: CASE EVENT DATE: 201710
